FAERS Safety Report 5134360-3 (Version None)
Quarter: 2006Q4

REPORT INFORMATION
  Report Type: 
  Country: None (occurrence: None)
  Receive Date: 20061025
  Receipt Date: 20061017
  Transmission Date: 20070319
  Serious: Yes (Other)
  Sender: FDA-Public Use
  Company Number: US-JNJFOC-20061004195

PATIENT
  Sex: Male
  Weight: 36.29 kg

DRUGS (3)
  1. RISPERDAL [Suspect]
     Route: 048
  2. RISPERDAL [Suspect]
     Indication: BIPOLAR DISORDER
     Route: 048
  3. METHYLPHENIDATE HCL [Concomitant]
     Route: 048

REACTIONS (1)
  - HEART RATE IRREGULAR [None]
